FAERS Safety Report 8575621-5 (Version None)
Quarter: 2012Q3

REPORT INFORMATION
  Report Type: 
  Country: None (occurrence: None)
  Receive Date: 20120807
  Receipt Date: 20120731
  Transmission Date: 20120928
  Serious: Yes (Disabling, Other)
  Sender: FDA-Public Use
  Company Number: AU-PFIZER INC-2012160803

PATIENT
  Age: 24 Year
  Sex: Male
  Weight: 110 kg

DRUGS (3)
  1. REVATIO [Suspect]
     Dosage: 40 MG, 3X/DAY
     Route: 048
     Dates: start: 20110510
  2. REVATIO [Suspect]
     Indication: PULMONARY ARTERIAL HYPERTENSION
     Dosage: 20 MG, UNK
     Route: 048
     Dates: end: 20110501
  3. BOSENTAN [Concomitant]
     Indication: PULMONARY ARTERIAL HYPERTENSION
     Dosage: 125 MG, 2X/DAY
     Route: 048
     Dates: start: 20020715

REACTIONS (2)
  - HAEMODYNAMIC TEST ABNORMAL [None]
  - PULMONARY HYPERTENSION [None]
